FAERS Safety Report 8910206 (Version 1)
Quarter: 2012Q4

REPORT INFORMATION
  Report Type: 
  Country: US (occurrence: US)
  Receive Date: 20121115
  Receipt Date: 20121115
  Transmission Date: 20130627
  Serious: Yes (Other)
  Sender: FDA-Public Use
  Company Number: US-BIOGENIDEC-2012BI051476

PATIENT
  Age: 47 Year
  Sex: Female

DRUGS (1)
  1. AVONEX [Suspect]
     Indication: MULTIPLE SCLEROSIS
     Route: 030
     Dates: start: 20010807

REACTIONS (7)
  - Myocardial infarction [Recovered/Resolved]
  - Cardiac perforation [Not Recovered/Not Resolved]
  - Cerebral thrombosis [Not Recovered/Not Resolved]
  - Road traffic accident [Recovered/Resolved]
  - Crying [Recovered/Resolved]
  - Migraine [Not Recovered/Not Resolved]
  - Insomnia [Recovered/Resolved]
